FAERS Safety Report 9490171 (Version 4)
Quarter: 2013Q4

REPORT INFORMATION
  Report Type: Spontaneous
  Country: AU (occurrence: AU)
  Receive Date: 20130830
  Receipt Date: 20131001
  Transmission Date: 20140711
  Serious: Yes (Death, Hospitalization, Other)
  Sender: FDA-Public Use
  Company Number: AU-AMGEN-AUSSP2013052061

PATIENT
  Age: 82 Year
  Sex: Female

DRUGS (11)
  1. PROLIA [Suspect]
     Indication: OSTEOPOROSIS POSTMENOPAUSAL
     Dosage: 60 MG, Q6MO
     Route: 058
     Dates: start: 20130702, end: 201307
  2. CRESTOR [Concomitant]
     Indication: HYPERLIPIDAEMIA
     Dosage: 20 MG, QD
     Route: 048
  3. CARDIZEM                           /00489701/ [Concomitant]
     Indication: HYPERTENSION
     Dosage: 240 MG, QD
     Route: 048
  4. MICARDIS [Concomitant]
     Indication: HYPERTENSION
     Dosage: 80 MG, QD
     Route: 048
  5. LYRICA [Concomitant]
     Dosage: 75 MG, UNK
     Route: 048
  6. PANADOL OSTEO [Concomitant]
     Indication: OSTEOARTHRITIS
     Dosage: UNK UNK, AS NECESSARY
     Route: 048
  7. ENDONE [Concomitant]
     Indication: OSTEOARTHRITIS
     Dosage: 5 MG, AS NECESSARY
  8. VITAMIN D                          /00107901/ [Concomitant]
  9. MOVICOL                            /01625101/ [Concomitant]
     Route: 048
  10. VOLTAREN                           /00372301/ [Concomitant]
     Indication: OSTEOARTHRITIS
     Route: 061
  11. DILTIAZEM [Concomitant]

REACTIONS (18)
  - Vomiting [Fatal]
  - Sepsis [Fatal]
  - Nausea [Fatal]
  - Confusional state [Unknown]
  - Diarrhoea [Unknown]
  - Anuria [Unknown]
  - Rales [Unknown]
  - Blood pressure decreased [Unknown]
  - Hypersensitivity [Unknown]
  - Delirium [Unknown]
  - Pneumonia [Unknown]
  - Urticaria [Unknown]
  - Rash erythematous [Unknown]
  - Pain [Unknown]
  - Blister [Unknown]
  - Decreased activity [Unknown]
  - Constipation [Unknown]
  - Renal failure acute [Fatal]
